FAERS Safety Report 8112991-6 (Version None)
Quarter: 2012Q1

REPORT INFORMATION
  Report Type: 
  Country: None (occurrence: None)
  Receive Date: 20120203
  Receipt Date: 20120123
  Transmission Date: 20120608
  Serious: Yes (Hospitalization, Other)
  Sender: FDA-Public Use
  Company Number: US-ELI_LILLY_AND_COMPANY-US201112000476

PATIENT
  Sex: Female

DRUGS (2)
  1. ADCIRCA [Suspect]
     Dosage: 40 MG, QD
     Route: 048
     Dates: start: 20110901
  2. NADOLOL [Concomitant]
     Dosage: 20 MG, QD

REACTIONS (2)
  - HYPERTHYROIDISM [None]
  - ATRIAL FIBRILLATION [None]
